FAERS Safety Report 17899598 (Version 3)
Quarter: 2020Q4

REPORT INFORMATION
  Report Type: Spontaneous
  Country: US (occurrence: US)
  Receive Date: 20200616
  Receipt Date: 20201001
  Transmission Date: 20210113
  Serious: Yes (Death, Hospitalization)
  Sender: FDA-Public Use
  Company Number: US-HTU-2020US020715

PATIENT
  Sex: Male

DRUGS (2)
  1. TRIAMCINOLONE ACETONIDE. [Concomitant]
     Active Substance: TRIAMCINOLONE ACETONIDE
  2. VALCHLOR [Suspect]
     Active Substance: MECHLORETHAMINE
     Indication: CUTANEOUS T-CELL LYMPHOMA
     Dosage: UNK, QD
     Route: 061

REACTIONS (6)
  - Multiple fractures [Unknown]
  - Ankle fracture [Recovered/Resolved]
  - Death [Fatal]
  - Ankle operation [Recovered/Resolved]
  - Intentional dose omission [Unknown]
  - Fall [Unknown]
